FAERS Safety Report 9690410 (Version 4)
Quarter: 2014Q4

REPORT INFORMATION
  Report Type: Spontaneous
  Country: US (occurrence: US)
  Receive Date: 20131115
  Receipt Date: 20141027
  Transmission Date: 20150529
  Serious: Yes (Hospitalization, Other)
  Sender: FDA-Public Use
  Company Number: US-BAYER-2013-137677

PATIENT
  Age: 29 Year
  Sex: Female
  Weight: 90.7 kg

DRUGS (2)
  1. SYNTHROID [Concomitant]
     Active Substance: LEVOTHYROXINE SODIUM
     Indication: HYPOTHYROIDISM
     Dosage: UNK
     Dates: start: 2007
  2. MIRENA [Suspect]
     Active Substance: LEVONORGESTREL
     Indication: CONTRACEPTION
     Dosage: 20 MCG/24HR, CONT
     Route: 015
     Dates: start: 20060814, end: 20130604

REACTIONS (13)
  - Device dislocation [None]
  - Device issue [None]
  - Device dislocation [None]
  - Drug ineffective [None]
  - Menstruation irregular [None]
  - Pregnancy with contraceptive device [None]
  - Uterine perforation [None]
  - Anxiety [None]
  - Device misuse [None]
  - Abdominal distension [None]
  - Abdominal pain [None]
  - Emotional distress [None]
  - Injury [None]

NARRATIVE: CASE EVENT DATE: 200610
